FAERS Safety Report 6318416-5 (Version None)
Quarter: 2009Q3

REPORT INFORMATION
  Report Type: 
  Country: None (occurrence: None)
  Receive Date: 20090821
  Receipt Date: 20090810
  Transmission Date: 20100115
  Serious: Yes (Other)
  Sender: FDA-Public Use
  Company Number: CN-PFIZER INC-2009247736

PATIENT
  Age: 70 Year

DRUGS (1)
  1. SUTENT [Suspect]
     Indication: METASTATIC RENAL CELL CARCINOMA
     Dosage: TDD 50 MG
     Route: 048
     Dates: start: 20090601

REACTIONS (1)
  - BLOOD ALBUMIN DECREASED [None]
